FAERS Safety Report 9464364 (Version 1)
Quarter: 2013Q3

REPORT INFORMATION
  Report Type: Spontaneous
  Country: ES (occurrence: ES)
  Receive Date: 20130819
  Receipt Date: 20130819
  Transmission Date: 20140515
  Serious: Yes (Hospitalization, Other)
  Sender: FDA-Public Use
  Company Number: ES-ROXANE LABORATORIES, INC.-2013-RO-01360RO

PATIENT
  Age: 47 Year
  Sex: Male

DRUGS (1)
  1. AZATHIOPRINE [Suspect]
     Indication: CROHN^S DISEASE
     Dosage: 100 MG

REACTIONS (7)
  - Nodular regenerative hyperplasia [Unknown]
  - Crohn^s disease [Unknown]
  - Thrombocytopenia [Unknown]
  - Liver disorder [Unknown]
  - Portal hypertension [Unknown]
  - Hepatosplenomegaly [Unknown]
  - Varices oesophageal [Unknown]
